FAERS Safety Report 16918366 (Version 2)
Quarter: 2019Q4

REPORT INFORMATION
  Report Type: Spontaneous
  Country: US (occurrence: US)
  Receive Date: 20191015
  Receipt Date: 20191030
  Transmission Date: 20200122
  Serious: No
  Sender: FDA-Public Use
  Company Number: US-MYLANLABS-2019M1091812

PATIENT
  Sex: Female

DRUGS (1)
  1. LIDOCAINE PATCH [Suspect]
     Active Substance: LIDOCAINE
     Indication: NEURALGIA
     Dosage: 12 HOURS ON/24 HOUR PERIOD
     Route: 003

REACTIONS (4)
  - Off label use [Unknown]
  - Application site irritation [Recovered/Resolved]
  - Pruritus [Unknown]
  - Pain [Unknown]
